FAERS Safety Report 11052198 (Version 1)
Quarter: 2015Q2

REPORT INFORMATION
  Report Type: Report from Study
  Country: US (occurrence: US)
  Receive Date: 20150421
  Receipt Date: 20150421
  Transmission Date: 20150821
  Serious: Yes (Other)
  Sender: FDA-Public Use
  Company Number: PHEH2015US000661

PATIENT
  Age: 70 Year
  Sex: Male

DRUGS (1)
  1. ZORTRESS [Suspect]
     Active Substance: EVEROLIMUS
     Indication: PRODUCT USED FOR UNKNOWN INDICATION
     Dosage: 0.75 MG, BID
     Route: 048

REACTIONS (4)
  - Nasopharyngitis [Unknown]
  - Retinal tear [Unknown]
  - Laryngitis [Unknown]
  - Speech disorder [Unknown]

NARRATIVE: CASE EVENT DATE: 20150406
